FAERS Safety Report 8828084 (Version 2)
Quarter: 2012Q4

REPORT INFORMATION
  Report Type: 
  Country: CN (occurrence: CN)
  Receive Date: 20121005
  Receipt Date: 20121009
  Transmission Date: 20130627
  Serious: Yes (Other)
  Sender: FDA-Public Use
  Company Number: CN-JNJFOC-20120912568

PATIENT
  Age: 54 Year
  Sex: Female

DRUGS (4)
  1. TYLENOL COLD [Suspect]
     Indication: NASOPHARYNGITIS
     Route: 048
     Dates: start: 20100120, end: 20100121
  2. DEXTROMETHORPHAN [Suspect]
     Indication: NASOPHARYNGITIS
     Route: 065
     Dates: start: 20100120
  3. CEFACLOR [Suspect]
     Indication: NASOPHARYNGITIS
     Route: 065
     Dates: start: 20100120
  4. UNSPECIFIED INGREDIENT [Suspect]
     Indication: NASOPHARYNGITIS
     Route: 065
     Dates: start: 20100120

REACTIONS (2)
  - Rash [Recovering/Resolving]
  - Erythema [None]
